FAERS Safety Report 21336967 (Version 1)
Quarter: 2022Q3

REPORT INFORMATION
  Report Type: Spontaneous
  Country: US (occurrence: None)
  Receive Date: 20220914
  Receipt Date: 20220914
  Transmission Date: 20221027
  Serious: Yes (unspecified)
  Sender: FDA-Public Use
  Company Number: None

PATIENT
  Age: 54 Year
  Sex: Female
  Weight: 50.31 kg

DRUGS (11)
  1. NALTREXONE [Suspect]
     Active Substance: NALTREXONE
     Indication: Alcohol use disorder
     Dosage: 25 MG DAILY ORAL?
     Route: 048
     Dates: start: 20220805, end: 20220807
  2. bacitracin topical BID [Concomitant]
  3. fluoxetine - 60 mg by mouth daily [Concomitant]
  4. lamotrigine - 150 mg by mouth daily [Concomitant]
  5. prenatal vitamin - 1 tablet by mouth daily [Concomitant]
  6. nicotine patch - 14 mg transdermal daily [Concomitant]
  7. Invega Sustenna - 117 mg IM every month [Concomitant]
  8. Thiamine - 100mg by mouth daily [Concomitant]
  9. melatonin - 6mg at bedtime as needed [Concomitant]
  10. nicotine lozenge - 2mg by mouth as needed [Concomitant]
  11. miraLAX - 17 grams by mouth as needed [Concomitant]

REACTIONS (3)
  - Rash [None]
  - Dermatitis contact [None]
  - Hypersensitivity [None]

NARRATIVE: CASE EVENT DATE: 20220806
